FAERS Safety Report 25772920 (Version 4)
Quarter: 2025Q4

REPORT INFORMATION
  Report Type: Spontaneous
  Country: GB (occurrence: GB)
  Receive Date: 20250908
  Receipt Date: 20251103
  Transmission Date: 20260117
  Serious: No
  Sender: PFIZER
  Company Number: GB-PFIZER INC-PV202500106579

PATIENT
  Age: 62 Year
  Sex: Female

DRUGS (1)
  1. GENOTROPIN [Suspect]
     Active Substance: SOMATROPIN
     Indication: Hypopituitarism
     Dosage: 0.2 MG, DAILY
     Route: 058
     Dates: start: 20250812

REACTIONS (3)
  - Drug dose omission by device [Not Recovered/Not Resolved]
  - Device leakage [Not Recovered/Not Resolved]
  - Device breakage [Not Recovered/Not Resolved]
